FAERS Safety Report 9140834 (Version 1)
Quarter: 2013Q1

REPORT INFORMATION
  Report Type: Spontaneous
  Country: US (occurrence: US)
  Receive Date: 20130305
  Receipt Date: 20130305
  Transmission Date: 20140127
  Serious: No
  Sender: FDA-Public Use
  Company Number: US-BAYER-2013-026794

PATIENT
  Age: 81 Year
  Sex: Female

DRUGS (5)
  1. BAYER GENUINE ASPIRIN ORIGINAL STRENGTH [Suspect]
  2. FINACEA [Suspect]
     Indication: ROSACEA
  3. FINACEA [Suspect]
     Indication: ROSACEA
     Dosage: UNK UNK, BID
     Dates: start: 201302
  4. MOTRIN [Suspect]
  5. RANITIDINE [Concomitant]
     Indication: BARRETT^S OESOPHAGUS
     Dosage: 150 MG, QID

REACTIONS (12)
  - Abdominal discomfort [None]
  - Expired drug administered [None]
  - Feeling abnormal [None]
  - Abdominal pain upper [None]
  - Eructation [None]
  - Axillary pain [None]
  - Headache [None]
  - Burning sensation [None]
  - Toothache [None]
  - Feeling abnormal [None]
  - Pruritus [None]
  - Breast pain [None]
